FAERS Safety Report 25279902 (Version 4)
Quarter: 2025Q3

REPORT INFORMATION
  Report Type: Spontaneous
  Country: US (occurrence: US)
  Receive Date: 20250507
  Receipt Date: 20250709
  Transmission Date: 20251021
  Serious: Yes (Hospitalization)
  Sender: BRISTOL-MYERS SQUIBB COMPANY
  Company Number: US-BRISTOL-MYERS SQUIBB COMPANY-2025-061967

PATIENT
  Age: 80 Year
  Sex: Female

DRUGS (3)
  1. POMALYST [Suspect]
     Active Substance: POMALIDOMIDE
     Indication: Plasma cell myeloma
     Dosage: TAKE 1 CAPSULE BY MOUTH ONCE DAILY
     Route: 048
  2. POMALYST [Suspect]
     Active Substance: POMALIDOMIDE
     Dosage: TAKE MEDICATION FOR 28 DAYS ON AND THEN WILL BE OFF A FEW DAYS A MONTH EVERY MONTH
  3. POMALYST [Suspect]
     Active Substance: POMALIDOMIDE
     Route: 048

REACTIONS (6)
  - Device related infection [Recovering/Resolving]
  - Memory impairment [Recovering/Resolving]
  - Nasopharyngitis [Recovered/Resolved]
  - Fatigue [Unknown]
  - Infection [Recovered/Resolved]
  - Cough [Recovered/Resolved]
